FAERS Safety Report 5051920-9 (Version None)
Quarter: 2006Q3

REPORT INFORMATION
  Report Type: 
  Country: None (occurrence: None)
  Receive Date: 20060713
  Receipt Date: 20060713
  Transmission Date: 20061208
  Serious: No
  Sender: FDA-Public Use
  Company Number: None

PATIENT
  Age: 48 Year
  Sex: Male

DRUGS (2)
  1. SULINDAC [Suspect]
     Indication: ARTHRALGIA
     Dosage: 150 MG PO BID
     Route: 048
  2. SULINDAC [Suspect]
     Indication: ARTHRITIS
     Dosage: 150 MG PO BID
     Route: 048

REACTIONS (2)
  - PRURITUS [None]
  - RASH [None]
